FAERS Safety Report 11220572 (Version 2)
Quarter: 2015Q3

REPORT INFORMATION
  Report Type: Report from Study
  Country: JP (occurrence: JP)
  Receive Date: 20150626
  Receipt Date: 20150701
  Transmission Date: 20151125
  Serious: Yes (Hospitalization)
  Sender: FDA-Public Use
  Company Number: JP-AMGEN-JPNCT2015062463

PATIENT
  Age: 84 Year
  Sex: Female
  Weight: 56 kg

DRUGS (22)
  1. DENOSUMAB [Suspect]
     Active Substance: DENOSUMAB
     Indication: PLASMA CELL MYELOMA
     Dosage: 120 MG, UNK
     Route: 065
     Dates: start: 20150106
  2. BORTEZOMIB [Concomitant]
     Active Substance: BORTEZOMIB
     Dosage: UNK
     Dates: start: 20141202
  3. PARIET [Concomitant]
     Active Substance: RABEPRAZOLE SODIUM
     Dosage: 20 MG, UNK
     Route: 048
     Dates: start: 20141214
  4. OXINORM                            /00045603/ [Concomitant]
     Dosage: 2.5 MG, UNK
     Route: 048
     Dates: start: 20141124
  5. CYCLOPHOSPHAMIDE. [Concomitant]
     Active Substance: CYCLOPHOSPHAMIDE
     Dosage: UNK
     Dates: start: 20141202
  6. BARACLUDE [Concomitant]
     Active Substance: ENTECAVIR
     Dosage: 0.5 MG, UNK
     Route: 048
     Dates: start: 20150514
  7. GRANISETRON [Concomitant]
     Active Substance: GRANISETRON
     Dosage: 2 MG, UNK
     Route: 048
     Dates: start: 20150507
  8. FUROSEMIDE. [Concomitant]
     Active Substance: FUROSEMIDE
     Dosage: 10 MG, UNK
     Route: 048
     Dates: start: 20150306, end: 20150507
  9. LIFOROS [Concomitant]
     Active Substance: LACTULOSE
     Dosage: 20 ML, UNK
     Route: 048
     Dates: start: 20150306
  10. GRACEVIT [Concomitant]
     Active Substance: SITAFLOXACIN
     Dosage: 50 MG, UNK
     Route: 048
     Dates: start: 20150610, end: 20150622
  11. AZUNOL                             /00317302/ [Concomitant]
     Dosage: 10 ML, UNK
     Route: 050
     Dates: start: 20150608, end: 20150615
  12. ACICLOVIR [Concomitant]
     Active Substance: ACYCLOVIR
     Dosage: 200 MG, UNK
     Route: 048
     Dates: start: 20141213
  13. SENNOSIDE                          /00571901/ [Concomitant]
     Active Substance: SENNOSIDES A AND B
     Dosage: 24 MG, UNK
     Route: 048
     Dates: start: 20150127
  14. DEXAMETHASONE. [Concomitant]
     Active Substance: DEXAMETHASONE
     Dosage: UNK
     Dates: start: 20141202
  15. MAGMITT [Concomitant]
     Active Substance: MAGNESIUM OXIDE
     Dosage: 500 MG, UNK
     Route: 048
     Dates: start: 20150127
  16. CALONAL [Concomitant]
     Active Substance: ACETAMINOPHEN
     Dosage: 400-600 MG, UNK
     Route: 048
     Dates: start: 20141123
  17. PREDONINE [Concomitant]
     Active Substance: PREDNISOLONE\PREDNISOLONE ACETATE\PREDNISOLONE SODIUM SUCCINATE
     Dosage: 10 MG, UNK
     Route: 048
     Dates: start: 20150605, end: 20150610
  18. AMLODIPIN                          /00972401/ [Concomitant]
     Active Substance: AMLODIPINE BESYLATE
     Dosage: 2.5 MG, UNK
     Route: 048
     Dates: start: 20141128
  19. ANGINAL                            /00042901/ [Concomitant]
     Dosage: 400 MG, UNK
     Route: 048
     Dates: start: 20141128
  20. CALCICHEW [Concomitant]
     Active Substance: CALCIUM CARBONATE
     Dosage: 2 UNK, UNK
     Route: 048
     Dates: start: 20150106
  21. ETIZOLAM [Concomitant]
     Active Substance: ETIZOLAM
     Dosage: 0.5 MG, UNK
     Route: 048
     Dates: start: 20150312
  22. OXYCONTIN [Concomitant]
     Active Substance: OXYCODONE HYDROCHLORIDE
     Dosage: 10 MG, UNK
     Route: 048
     Dates: start: 20141219

REACTIONS (2)
  - Osteomyelitis [Not Recovered/Not Resolved]
  - Osteonecrosis of jaw [Not Recovered/Not Resolved]

NARRATIVE: CASE EVENT DATE: 20150622
